FAERS Safety Report 7548023-8 (Version None)
Quarter: 2011Q2

REPORT INFORMATION
  Report Type: 
  Country: None (occurrence: None)
  Receive Date: 20110524
  Receipt Date: 20110224
  Transmission Date: 20111010
  Serious: No
  Sender: FDA-Public Use
  Company Number: 028256

PATIENT
  Sex: Female

DRUGS (1)
  1. CIMZIA [Suspect]
     Indication: CROHN'S DISEASE
     Dosage: SUBCUTANEOUS
     Route: 058

REACTIONS (4)
  - INCREASED APPETITE [None]
  - CONSTIPATION [None]
  - FLATULENCE [None]
  - ABDOMINAL DISTENSION [None]
